FAERS Safety Report 5132934-7 (Version None)
Quarter: 2006Q4

REPORT INFORMATION
  Report Type: 
  Country: None (occurrence: None)
  Receive Date: 20061017
  Receipt Date: 20061003
  Transmission Date: 20070319
  Serious: Yes (Life-Threatening)
  Sender: FDA-Public Use
  Company Number: 863#1#2006-00012

PATIENT
  Age: 35 Year
  Sex: Female

DRUGS (2)
  1. IDROLAX (MACROGOL) [Suspect]
     Indication: CONSTIPATION
     Dosage: 20 G (20 G 1 IN 1 DAY(S))
     Route: 048
     Dates: start: 20060801, end: 20060801
  2. IDROLAX (MACROGOL) [Suspect]
     Indication: POSTPARTUM DISORDER
     Dosage: 20 G (20 G 1 IN 1 DAY(S))
     Route: 048
     Dates: start: 20060801, end: 20060801

REACTIONS (1)
  - ANAPHYLACTIC SHOCK [None]
